FAERS Safety Report 9423140 (Version 3)
Quarter: 2015Q1

REPORT INFORMATION
  Report Type: Spontaneous
  Country: US (occurrence: US)
  Receive Date: 20130726
  Receipt Date: 20150121
  Transmission Date: 20150721
  Serious: Yes (Death)
  Sender: FDA-Public Use
  Company Number: US-BRISTOL-MYERS SQUIBB COMPANY-19132562

PATIENT
  Age: 80 Year
  Sex: Male
  Weight: 78.46 kg

DRUGS (21)
  1. ALLOPURINOL. [Concomitant]
     Active Substance: ALLOPURINOL
  2. DEMADEX [Concomitant]
     Active Substance: TORSEMIDE
  3. NIACIN. [Concomitant]
     Active Substance: NIACIN
  4. ASPIRIN. [Concomitant]
     Active Substance: ASPIRIN
  5. SYNTHROID [Concomitant]
     Active Substance: LEVOTHYROXINE SODIUM
  6. AMARYL [Concomitant]
     Active Substance: GLIMEPIRIDE
  7. LOPRESSOR [Concomitant]
     Active Substance: METOPROLOL TARTRATE
  8. TORSEMIDE. [Concomitant]
     Active Substance: TORSEMIDE
  9. OMEPRAZOL E [Concomitant]
     Active Substance: OMEPRAZOLE
  10. NIASPAN [Concomitant]
     Active Substance: NIACIN
  11. LIPITOR [Concomitant]
     Active Substance: ATORVASTATIN CALCIUM
  12. COLCHICINE. [Concomitant]
     Active Substance: COLCHICINE
  13. GLIPIZIDE. [Concomitant]
     Active Substance: GLIPIZIDE
  14. LISINOPRIL. [Concomitant]
     Active Substance: LISINOPRIL
  15. METOPROLOL TARTRATE. [Concomitant]
     Active Substance: METOPROLOL TARTRATE
  16. CRESTOR [Concomitant]
     Active Substance: ROSUVASTATIN CALCIUM
  17. ACTOS [Concomitant]
     Active Substance: PIOGLITAZONE HYDROCHLORIDE
  18. BYETTA [Suspect]
     Active Substance: EXENATIDE
     Indication: DIABETES MELLITUS
     Dosage: ONGOING UNTIL UNSPECIFIED DATE IN FEB-2012  INITIALLY 5MCG
     Route: 065
     Dates: start: 200707
  19. CALCIUM CARBONATE. [Concomitant]
     Active Substance: CALCIUM CARBONATE
  20. COZAAR [Concomitant]
     Active Substance: LOSARTAN POTASSIUM
  21. LUPRON [Concomitant]
     Active Substance: LEUPROLIDE ACETATE

REACTIONS (1)
  - Pancreatic carcinoma metastatic [Fatal]

NARRATIVE: CASE EVENT DATE: 200707
